FAERS Safety Report 5154905-7 (Version None)
Quarter: 2006Q4

REPORT INFORMATION
  Report Type: 
  Country: None (occurrence: None)
  Receive Date: 20061117
  Receipt Date: 20061117
  Transmission Date: 20070319
  Serious: Yes (Other)
  Sender: FDA-Public Use
  Company Number: None

PATIENT
  Age: 37 Year
  Sex: Female
  Weight: 99.7913 kg

DRUGS (1)
  1. CLOPIDOGREL [Suspect]
     Indication: DRUG THERAPY
     Dosage: 75MG   DAILY   PO
     Route: 048
     Dates: start: 20061102, end: 20061115

REACTIONS (4)
  - CONTUSION [None]
  - EPISTAXIS [None]
  - GINGIVAL BLEEDING [None]
  - PHARMACEUTICAL PRODUCT COMPLAINT [None]
